FAERS Safety Report 4287353-2 (Version None)
Quarter: 2004Q1

REPORT INFORMATION
  Report Type: 
  Country: None (occurrence: None)
  Receive Date: 20040205
  Receipt Date: 20020905
  Transmission Date: 20041129
  Serious: Yes (Hospitalization)
  Sender: FDA-Public Use
  Company Number: B01200202369

PATIENT
  Age: 67 Year
  Sex: Male

DRUGS (4)
  1. CLOPIDOGREL BISULFATE [Suspect]
     Indication: ISCHAEMIC STROKE
     Dosage: 75 MG QD / 75 MG ORAL
     Route: 048
     Dates: start: 20020411, end: 20020101
  2. CLOPIDOGREL BISULFATE [Suspect]
     Indication: TRANSIENT ISCHAEMIC ATTACK
     Dosage: 75 MG QD / 75 MG ORAL
     Route: 048
     Dates: start: 20020411, end: 20020101
  3. CLOPIDOGREL BISULFATE [Suspect]
     Indication: ISCHAEMIC STROKE
     Dosage: 75 MG QD / 75 MG ORAL
     Route: 048
     Dates: start: 20020629
  4. CLOPIDOGREL BISULFATE [Suspect]
     Indication: TRANSIENT ISCHAEMIC ATTACK
     Dosage: 75 MG QD / 75 MG ORAL
     Route: 048
     Dates: start: 20020629

REACTIONS (4)
  - BARRETT'S OESOPHAGUS [None]
  - GASTRITIS EROSIVE [None]
  - GASTRITIS HAEMORRHAGIC [None]
  - GASTRODUODENAL ULCER [None]
